FAERS Safety Report 5406184-0 (Version None)
Quarter: 2007Q3

REPORT INFORMATION
  Report Type: 
  Country: None (occurrence: None)
  Receive Date: 20070801
  Receipt Date: 20070724
  Transmission Date: 20080115
  Serious: Yes (Other)
  Sender: FDA-Public Use
  Company Number: S07-USA-03190-01

PATIENT
  Age: 72 Year
  Sex: Female

DRUGS (2)
  1. LEXAPRO [Suspect]
     Indication: DEPRESSION
     Dosage: 10 MG QD PO
     Route: 048
     Dates: start: 20040101
  2. LORTAB [Suspect]
     Indication: PAIN
     Dosage: 5  MG QD
     Dates: start: 20070720, end: 20070724

REACTIONS (4)
  - CANCER PAIN [None]
  - CONFUSIONAL STATE [None]
  - DYSPNOEA [None]
  - LUNG NEOPLASM MALIGNANT [None]
